FAERS Safety Report 14891821 (Version 1)
Quarter: 2018Q2

REPORT INFORMATION
  Report Type: Spontaneous
  Country: GB (occurrence: GB)
  Receive Date: 20180514
  Receipt Date: 20180514
  Transmission Date: 20180711
  Serious: Yes (Hospitalization)
  Sender: FDA-Public Use
  Company Number: GB-SA-2018SA128441

PATIENT
  Age: 75 Year
  Sex: Male

DRUGS (21)
  1. ADCAL-D3 [Concomitant]
     Active Substance: CALCIUM CARBONATE\CHOLECALCIFEROL
     Indication: BONE PAIN
     Dosage: 750/200 MG, ONCE DAILY
     Route: 048
     Dates: start: 20171003
  2. CODEINE [Concomitant]
     Active Substance: CODEINE
     Indication: SPINAL PAIN
     Route: 048
     Dates: start: 20171003
  3. COTRIMOXAZOLE [Concomitant]
     Active Substance: SULFAMETHOXAZOLE\TRIMETHOPRIM
     Indication: INFECTION PROPHYLAXIS
     Route: 048
     Dates: start: 20171208
  4. ENZALUTAMIDE [Suspect]
     Active Substance: ENZALUTAMIDE
     Indication: PROSTATE CANCER
     Route: 065
  5. BLINDED THERAPY [Suspect]
     Active Substance: INVESTIGATIONAL PRODUCT
     Indication: PROSTATE CANCER
     Route: 048
     Dates: start: 20171208
  6. GLYCERYL TRINITRATE [Concomitant]
     Active Substance: NITROGLYCERIN
     Indication: ANGINA PECTORIS
     Dosage: 1-2 PUFFS, AS NEEDED
     Route: 055
     Dates: start: 2005
  7. ZOMORPH [Concomitant]
     Active Substance: MORPHINE SULFATE
     Indication: BONE PAIN
     Route: 048
     Dates: start: 2017
  8. METOCLOPRAMIDE. [Concomitant]
     Active Substance: METOCLOPRAMIDE
     Route: 042
     Dates: start: 20171208
  9. ZOMETA [Concomitant]
     Active Substance: ZOLEDRONIC ACID
     Indication: BONE PAIN
     Route: 042
     Dates: start: 20171009
  10. DOCETAXEL. [Suspect]
     Active Substance: DOCETAXEL
     Indication: PROSTATE CANCER
     Route: 051
     Dates: start: 20171208
  11. SALBUTAMOL [Concomitant]
     Active Substance: ALBUTEROL
     Indication: DYSPNOEA
     Route: 055
     Dates: start: 2004
  12. GABAPENTIN. [Concomitant]
     Active Substance: GABAPENTIN
     Indication: SPINAL PAIN
     Route: 048
     Dates: start: 201707
  13. WARFARIN [Concomitant]
     Active Substance: WARFARIN
     Indication: PRODUCT USED FOR UNKNOWN INDICATION
     Route: 048
     Dates: start: 2005
  14. FLUOXETINE [Concomitant]
     Active Substance: FLUOXETINE HYDROCHLORIDE
     Indication: DEPRESSION
     Route: 048
     Dates: start: 1995
  15. ATORVASTATIN [Concomitant]
     Active Substance: ATORVASTATIN
     Indication: BLOOD CHOLESTEROL
     Route: 048
     Dates: start: 2005
  16. DEXAMETHASONE. [Concomitant]
     Active Substance: DEXAMETHASONE
     Indication: PRODUCT USED FOR UNKNOWN INDICATION
     Route: 048
     Dates: start: 20171208
  17. LACTULOSE. [Concomitant]
     Active Substance: LACTULOSE
     Indication: CONSTIPATION PROPHYLAXIS
     Route: 048
     Dates: start: 20171004
  18. CARBOHYDRATES NOS/VITAMINS NOS/PROTEIN/FATS NOS/MINERALS NOS [Concomitant]
     Indication: NUTRITIONAL SUPPLEMENTATION
     Route: 048
     Dates: start: 20171227
  19. PREDNISOLONE. [Suspect]
     Active Substance: PREDNISOLONE
     Indication: PROSTATE CANCER
     Route: 048
     Dates: start: 20171210
  20. PARACETAMOL [Concomitant]
     Active Substance: ACETAMINOPHEN
     Indication: SPINAL PAIN
     Route: 048
     Dates: start: 201506, end: 201707
  21. ATENOLOL. [Concomitant]
     Active Substance: ATENOLOL
     Indication: PRODUCT USED FOR UNKNOWN INDICATION
     Route: 048
     Dates: start: 20160922

REACTIONS (1)
  - Orthostatic hypotension [Not Recovered/Not Resolved]

NARRATIVE: CASE EVENT DATE: 20180417
